FAERS Safety Report 13818957 (Version 1)
Quarter: 2017Q3

REPORT INFORMATION
  Report Type: Report from Study
  Country: US (occurrence: US)
  Receive Date: 20170731
  Receipt Date: 20170731
  Transmission Date: 20171127
  Serious: No
  Sender: FDA-Public Use
  Company Number: US-EXELIXIS-CABO-17008569

PATIENT
  Age: 59 Year
  Sex: Male

DRUGS (8)
  1. PROCTOMED [Concomitant]
  2. LIDOCAINE W/PRILOCAINE [Concomitant]
     Active Substance: LIDOCAINE\PRILOCAINE
  3. MULTIVITAMIN [Concomitant]
     Active Substance: VITAMINS
  4. LEVOTHYROXINE. [Concomitant]
     Active Substance: LEVOTHYROXINE
  5. AMLODIPINE [Concomitant]
     Active Substance: AMLODIPINE BESYLATE
  6. CABOMETYX [Suspect]
     Active Substance: CABOZANTINIB S-MALATE
     Indication: RENAL CANCER
     Dosage: 20 MG, QD
     Route: 048
     Dates: start: 20170222
  7. LISINOPRIL. [Concomitant]
     Active Substance: LISINOPRIL
  8. MECLIZINE [Concomitant]
     Active Substance: MECLIZINE HYDROCHLORIDE

REACTIONS (7)
  - Neuropathy peripheral [Unknown]
  - Tongue blistering [Unknown]
  - Fatigue [Unknown]
  - Vertigo [Unknown]
  - Dry skin [Unknown]
  - Muscle spasms [Unknown]
  - Blister [Unknown]

NARRATIVE: CASE EVENT DATE: 201703
